FAERS Safety Report 9689120 (Version 3)
Quarter: 2014Q1

REPORT INFORMATION
  Report Type: Spontaneous
  Country: US (occurrence: US)
  Receive Date: 20131114
  Receipt Date: 20140312
  Transmission Date: 20141002
  Serious: Yes (Hospitalization, Other)
  Sender: FDA-Public Use
  Company Number: US-BAYER-2013-135901

PATIENT
  Age: 31 Year
  Sex: Female
  Weight: 89.8 kg

DRUGS (8)
  1. YAZ [Suspect]
     Indication: MENSTRUATION IRREGULAR
     Dosage: UNK
     Dates: start: 2006, end: 200812
  2. YAZ [Suspect]
     Indication: PREMENSTRUAL DYSPHORIC DISORDER
  3. YAZ [Suspect]
     Indication: PREMENSTRUAL SYNDROME
  4. OXYCODONE/APAP [Concomitant]
     Dosage: 5-325
  5. SYNTHROID [Concomitant]
     Indication: HYPOTHYROIDISM
     Dosage: 0.25 DAILY
  6. KEFLEX [Concomitant]
     Dosage: 500, QID
  7. OXYCODONE HYDROCHLORIDE [Concomitant]
     Dosage: 5-325 EVERY 4 TO 6 HOURS
  8. VENOFER [Concomitant]
     Indication: IRON DEFICIENCY ANAEMIA
     Route: 042

REACTIONS (8)
  - Deep vein thrombosis [None]
  - Injury [None]
  - Pulmonary embolism [None]
  - Myocardial infarction [None]
  - Cerebrovascular accident [None]
  - Gallbladder disorder [None]
  - Pain [None]
  - Mental disorder [None]
